FAERS Safety Report 14346339 (Version 4)
Quarter: 2018Q1

REPORT INFORMATION
  Report Type: Spontaneous
  Country: GB (occurrence: GB)
  Receive Date: 20180103
  Receipt Date: 20180316
  Transmission Date: 20180509
  Serious: Yes (Hospitalization)
  Sender: FDA-Public Use
  Company Number: GB-BIOGEN-2018BI00504479

PATIENT
  Sex: Female

DRUGS (1)
  1. FAMPYRA [Suspect]
     Active Substance: DALFAMPRIDINE
     Indication: MULTIPLE SCLEROSIS
     Route: 048
     Dates: start: 20140507

REACTIONS (5)
  - Malaise [Unknown]
  - Gastroenteritis norovirus [Unknown]
  - Pneumonia [Unknown]
  - Pyrexia [Unknown]
  - Lower limb fracture [Unknown]
